FAERS Safety Report 17462518 (Version 1)
Quarter: 2020Q1

REPORT INFORMATION
  Report Type: Report from Study
  Country: US (occurrence: US)
  Receive Date: 20200226
  Receipt Date: 20200226
  Transmission Date: 20200409
  Serious: Yes (Hospitalization)
  Sender: FDA-Public Use
  Company Number: US-ACTELION-A-NJ2020-202220

PATIENT
  Age: 55 Year
  Sex: Male

DRUGS (5)
  1. METOPROLOL. [Concomitant]
     Active Substance: METOPROLOL
  2. TORSEMIDE. [Concomitant]
     Active Substance: TORSEMIDE
  3. LOSARTAN. [Concomitant]
     Active Substance: LOSARTAN
  4. OPSUMIT [Suspect]
     Active Substance: MACITENTAN
     Indication: PULMONARY ARTERIAL HYPERTENSION
     Dosage: 10 MG, QD
     Route: 048
     Dates: start: 201810
  5. SILDENAFIL. [Concomitant]
     Active Substance: SILDENAFIL

REACTIONS (4)
  - Pain in extremity [Unknown]
  - Tibia fracture [Unknown]
  - Fall [Unknown]
  - Gait inability [Unknown]

NARRATIVE: CASE EVENT DATE: 20200208
